FAERS Safety Report 8022275-2 (Version None)
Quarter: 2012Q1

REPORT INFORMATION
  Report Type: 
  Country: None (occurrence: None)
  Receive Date: 20120104
  Receipt Date: 20111230
  Transmission Date: 20120608
  Serious: Yes (Hospitalization, Other)
  Sender: FDA-Public Use
  Company Number: PHHY2011IN106531

PATIENT
  Age: 63 Year
  Sex: Female

DRUGS (4)
  1. ANTIANDROGENS [Concomitant]
     Dosage: UNK UKN, UNK
  2. CALCIMAX [Concomitant]
     Dosage: UNK UKN, UNK
  3. ZOLEDRONOC ACID [Suspect]
     Dosage: 5 MG, UNK
     Route: 042
  4. NASAL SPRAY [Concomitant]
     Dosage: UNK UKN, UNK

REACTIONS (10)
  - BACK PAIN [None]
  - HYPERTENSION [None]
  - TRAUMATIC SPINAL CORD COMPRESSION [None]
  - HYPOCALCAEMIA [None]
  - SPINAL CORD COMPRESSION [None]
  - MENTAL DISORDER [None]
  - OSTEOPOROTIC FRACTURE [None]
  - OSTEOPOROSIS [None]
  - HYPOKINESIA [None]
  - FALL [None]
